FAERS Safety Report 5022102-1 (Version None)
Quarter: 2006Q2

REPORT INFORMATION
  Report Type: 
  Country: None (occurrence: None)
  Receive Date: 20060605
  Receipt Date: 20060524
  Transmission Date: 20061013
  Serious: Yes (Hospitalization)
  Sender: FDA-Public Use
  Company Number: 2006068643

PATIENT
  Age: 54 Year
  Sex: Male

DRUGS (1)
  1. LYRICA [Suspect]
     Indication: NEURALGIA
     Dosage: (75 MG)

REACTIONS (2)
  - ATRIAL FIBRILLATION [None]
  - LIBIDO DECREASED [None]
